FAERS Safety Report 18618465 (Version 1)
Quarter: 2020Q4

REPORT INFORMATION
  Report Type: Spontaneous
  Country: US (occurrence: US)
  Receive Date: 20201214
  Receipt Date: 20201214
  Transmission Date: 20210114
  Serious: Yes (Death)
  Sender: FDA-Public Use
  Company Number: None

PATIENT
  Age: 77 Year
  Sex: Male

DRUGS (1)
  1. REVLIMID [Suspect]
     Active Substance: LENALIDOMIDE
     Indication: PLASMA CELL MYELOMA
     Route: 048
     Dates: start: 20200414

REACTIONS (7)
  - Hepatic mass [None]
  - Pneumothorax [None]
  - Supraventricular tachycardia [None]
  - Acute respiratory failure [None]
  - Procedural pain [None]
  - Hypoxia [None]
  - Haemorrhage [None]

NARRATIVE: CASE EVENT DATE: 20201125
